FAERS Safety Report 20670739 (Version 2)
Quarter: 2022Q2

REPORT INFORMATION
  Report Type: Report from Study
  Country: KR (occurrence: KR)
  Receive Date: 20220404
  Receipt Date: 20220502
  Transmission Date: 20220720
  Serious: Yes (Other)
  Sender: FDA-Public Use
  Company Number: KR-002147023-NVSC2022KR069235

PATIENT

DRUGS (9)
  1. RUXOLITINIB [Suspect]
     Active Substance: RUXOLITINIB
     Indication: Myelofibrosis
     Dosage: 20 MG, BID
     Route: 048
     Dates: start: 20210915, end: 20211229
  2. RUXOLITINIB [Suspect]
     Active Substance: RUXOLITINIB
     Dosage: 15 MG, QD
     Route: 048
     Dates: start: 20211229
  3. OLMEC [Concomitant]
     Indication: Hypertension
     Dosage: 10 MG, QD
     Route: 065
     Dates: start: 20210315
  4. FERROUS SULFATE [Concomitant]
     Active Substance: FERROUS SULFATE
     Indication: Prophylaxis
     Dosage: 80 MG, QD
     Route: 065
     Dates: start: 20210915, end: 20210927
  5. PHENIRAMINE [CHLORPHENAMINE MALEATE] [Concomitant]
     Indication: Prophylaxis
     Dosage: 4 MG, QD
     Route: 042
     Dates: start: 20211117, end: 20211117
  6. PHENIRAMINE [CHLORPHENAMINE MALEATE] [Concomitant]
     Dosage: 4 MG, QD
     Route: 042
     Dates: start: 20211215, end: 20211215
  7. PHENIRAMINE [CHLORPHENAMINE MALEATE] [Concomitant]
     Dosage: 4 MG, QD
     Route: 042
     Dates: start: 20211229, end: 20211229
  8. PHENIRAMINE [CHLORPHENAMINE MALEATE] [Concomitant]
     Dosage: 4 MG, QD
     Route: 042
     Dates: start: 20220209, end: 20220209
  9. ALLOPURINOL [Concomitant]
     Active Substance: ALLOPURINOL
     Indication: Hyperuricaemia
     Dosage: 100 MG, QD
     Route: 065
     Dates: start: 20210818

REACTIONS (10)
  - Abdominal distension [Recovered/Resolved]
  - Anaemia [Not Recovered/Not Resolved]
  - Arthralgia [Recovered/Resolved]
  - Dyspnoea [Recovered/Resolved]
  - Hypoaesthesia [Recovered/Resolved]
  - Hypothyroidism [Not Recovered/Not Resolved]
  - Neuralgia [Not Recovered/Not Resolved]
  - Inappropriate schedule of product administration [Unknown]
  - Hyperhidrosis [Recovered/Resolved]
  - Thrombocytopenia [Not Recovered/Not Resolved]

NARRATIVE: CASE EVENT DATE: 20210901
